FAERS Safety Report 4674001-2 (Version None)
Quarter: 2005Q2

REPORT INFORMATION
  Report Type: 
  Country: None (occurrence: None)
  Receive Date: 20050525
  Receipt Date: 20050511
  Transmission Date: 20051028
  Serious: No
  Sender: FDA-Public Use
  Company Number: JP-2005-004635

PATIENT
  Age: 85 Year
  Sex: Male
  Weight: 67.6 kg

DRUGS (1)
  1. MAGNEVIST [Suspect]
     Indication: NUCLEAR MAGNETIC RESONANCE IMAGING
     Dosage: 14 ML, 1 ML/SEC., INTRAVENOUS
     Route: 042
     Dates: start: 20050323, end: 20050323

REACTIONS (2)
  - ASTHMA [None]
  - BLOOD PRESSURE SYSTOLIC INCREASED [None]
